FAERS Safety Report 25291637 (Version 3)
Quarter: 2025Q2

REPORT INFORMATION
  Report Type: Spontaneous
  Country: US (occurrence: US)
  Receive Date: 20250510
  Receipt Date: 20250625
  Transmission Date: 20250716
  Serious: No
  Sender: SANOFI AVENTIS
  Company Number: US-SA-2025SA119487

PATIENT
  Sex: Male

DRUGS (2)
  1. DUPIXENT [Suspect]
     Active Substance: DUPILUMAB
     Indication: Asthma
     Dosage: 300 MG, QOW
     Route: 058
     Dates: start: 20230817
  2. DUPIXENT [Suspect]
     Active Substance: DUPILUMAB
     Indication: Dermatitis atopic

REACTIONS (6)
  - Impaired quality of life [Not Recovered/Not Resolved]
  - Influenza [Unknown]
  - Sleep disorder due to a general medical condition [Unknown]
  - Discomfort [Unknown]
  - Dermatitis atopic [Not Recovered/Not Resolved]
  - Drug ineffective [Unknown]
